FAERS Safety Report 12606709 (Version 1)
Quarter: 2016Q3

REPORT INFORMATION
  Report Type: Spontaneous
  Country: ID (occurrence: ID)
  Receive Date: 20160729
  Receipt Date: 20160729
  Transmission Date: 20161109
  Serious: Yes (Life-Threatening, Hospitalization)
  Sender: FDA-Public Use
  Company Number: ID-ASTRAZENECA-2016SE79991

PATIENT
  Age: 70 Year
  Sex: Male

DRUGS (2)
  1. ASPIRIN. [Concomitant]
     Active Substance: ASPIRIN
     Indication: ACUTE CORONARY SYNDROME
  2. BRILINTA [Suspect]
     Active Substance: TICAGRELOR
     Indication: ACUTE CORONARY SYNDROME
     Dosage: UNKNOWN
     Route: 048
     Dates: end: 20160718

REACTIONS (5)
  - Haemorrhage intracranial [Unknown]
  - Procedural haemorrhage [Unknown]
  - Haematemesis [Unknown]
  - Loss of consciousness [Unknown]
  - Snoring [Unknown]

NARRATIVE: CASE EVENT DATE: 20160718
